FAERS Safety Report 5395668-X (Version None)
Quarter: 2007Q3

REPORT INFORMATION
  Report Type: 
  Country: None (occurrence: None)
  Receive Date: 20070724
  Receipt Date: 20070716
  Transmission Date: 20080115
  Serious: Yes (Hospitalization)
  Sender: FDA-Public Use
  Company Number: FR-BOEHRINGER INGELHEIM PHARMACEUTICALS, INC.-2007-BP-17880YA

PATIENT
  Age: 64 Year
  Sex: Male

DRUGS (4)
  1. OMIX L.P. [Suspect]
     Indication: BENIGN PROSTATIC HYPERPLASIA
     Route: 048
     Dates: end: 20070525
  2. ALLOPURINOL [Suspect]
     Indication: GOUT
     Route: 048
     Dates: end: 20070525
  3. STAMARIL [Suspect]
     Route: 030
     Dates: start: 20070518, end: 20070518
  4. COLCHIMAX (COLCHICINE) [Concomitant]
     Dates: end: 20070520

REACTIONS (4)
  - ARTHRALGIA [None]
  - MYALGIA [None]
  - PANCYTOPENIA [None]
  - PYREXIA [None]
